FAERS Safety Report 5497832-8 (Version None)
Quarter: 2007Q4

REPORT INFORMATION
  Report Type: 
  Country: None (occurrence: None)
  Receive Date: 20071025
  Receipt Date: 20070307
  Transmission Date: 20080405
  Serious: No
  Sender: FDA-Public Use
  Company Number: A0642186A

PATIENT
  Age: 68 Year
  Sex: Male

DRUGS (3)
  1. ADVAIR DISKUS 100/50 [Suspect]
     Dosage: 1PUFF VARIABLE DOSE
     Route: 055
  2. XOPENEX [Concomitant]
  3. AVAPRO [Concomitant]

REACTIONS (2)
  - BLEPHARITIS [None]
  - ROSACEA [None]
